FAERS Safety Report 7779193-4 (Version None)
Quarter: 2011Q3

REPORT INFORMATION
  Report Type: 
  Country: None (occurrence: None)
  Receive Date: 20110926
  Receipt Date: 20110922
  Transmission Date: 20111222
  Serious: Yes (Life-Threatening, Hospitalization)
  Sender: FDA-Public Use
  Company Number: JP-B.I. PHARMACEUTICALS,INC./RIDGEFIELD-2011-BP-22611NB

PATIENT
  Age: 90 Year
  Sex: Female

DRUGS (9)
  1. ASPENON [Suspect]
     Indication: ARRHYTHMIA
     Dosage: 20 MG
     Route: 048
     Dates: start: 20110512, end: 20110518
  2. ALMARL [Concomitant]
     Dosage: 5 MG
     Route: 048
     Dates: start: 20100715
  3. ZEPOLAS [Concomitant]
     Route: 062
  4. PRADAXA [Suspect]
     Indication: ATRIAL FIBRILLATION
     Dosage: 220 MG
     Route: 048
     Dates: start: 20110512, end: 20110518
  5. DILTIAZEM HCL [Suspect]
     Dosage: 200 MG
     Route: 048
     Dates: start: 20110512, end: 20110518
  6. LASIX [Concomitant]
     Dosage: 20 MG
     Route: 048
     Dates: start: 20110512
  7. VALSARTAN  AND HYDROCHLOROTHIAZIDE [Concomitant]
     Indication: HYPERTENSION
     Route: 048
     Dates: start: 20100902, end: 20110518
  8. DOXAZOSIN MESYLATE [Concomitant]
     Dosage: 2 MG
     Route: 048
     Dates: start: 20101021
  9. ALDACTONE [Concomitant]
     Dosage: 25 MG
     Route: 048
     Dates: start: 20110512

REACTIONS (3)
  - BRADYCARDIA [None]
  - RENAL FAILURE ACUTE [None]
  - MOUTH HAEMORRHAGE [None]
